FAERS Safety Report 21791088 (Version 1)
Quarter: 2022Q4

REPORT INFORMATION
  Report Type: Spontaneous
  Country: IT (occurrence: IT)
  Receive Date: 20221228
  Receipt Date: 20221228
  Transmission Date: 20230113
  Serious: Yes (Other)
  Sender: FDA-Public Use
  Company Number: IT-AMERICAN REGENT INC-2022003646

PATIENT
  Age: 43 Year
  Sex: Male

DRUGS (2)
  1. FERINJECT [Suspect]
     Active Substance: FERRIC CARBOXYMALTOSE
     Indication: Iron deficiency anaemia
     Dosage: 1000 MILLIGRAM IN 250 ML PHYSIOLOGICAL SOLUTION, IN TOTAL 2 DOSES RECEIVED (2000 MG)
     Dates: start: 20221103, end: 20221117
  2. FERINJECT [Suspect]
     Active Substance: FERRIC CARBOXYMALTOSE
     Dosage: 500 MILLIGRAM IN 250 ML PHYSIOLOGICAL SOLUTION IN TOTAL 4 ADMINISTRATIONS (2000 MG)
     Dates: start: 2022, end: 2022

REACTIONS (1)
  - Epistaxis [Recovered/Resolved]

NARRATIVE: CASE EVENT DATE: 20221103
